FAERS Safety Report 14749720 (Version 2)
Quarter: 2018Q2

REPORT INFORMATION
  Report Type: Report from Study
  Country: US (occurrence: US)
  Receive Date: 20180412
  Receipt Date: 20180418
  Transmission Date: 20180711
  Serious: Yes (Other)
  Sender: FDA-Public Use
  Company Number: US-BEH-2018089476

PATIENT
  Age: 63 Year
  Sex: Male
  Weight: 70.75 kg

DRUGS (3)
  1. HIZENTRA [Suspect]
     Active Substance: HUMAN IMMUNOGLOBULIN G
     Indication: CHRONIC INFLAMMATORY DEMYELINATING POLYRADICULONEUROPATHY
     Dosage: 24 G, UNK
     Route: 058
     Dates: start: 20171127, end: 20180223
  2. HIZENTRA [Suspect]
     Active Substance: HUMAN IMMUNOGLOBULIN G
     Dosage: UNK
     Route: 058
  3. HIZENTRA [Suspect]
     Active Substance: HUMAN IMMUNOGLOBULIN G
     Dosage: UNK
     Route: 058

REACTIONS (4)
  - Chronic inflammatory demyelinating polyradiculoneuropathy [Recovering/Resolving]
  - Herpes zoster [Unknown]
  - General physical health deterioration [Recovering/Resolving]
  - Infusion site pain [Unknown]

NARRATIVE: CASE EVENT DATE: 20180122
